FAERS Safety Report 10648327 (Version 1)
Quarter: 2014Q4

REPORT INFORMATION
  Report Type: Spontaneous
  Country: US (occurrence: US)
  Receive Date: 20141212
  Receipt Date: 20141212
  Transmission Date: 20150529
  Serious: Yes (Death)
  Sender: FDA-Public Use
  Company Number: CHPA2014US016355

PATIENT
  Age: 90 Year
  Sex: Male

DRUGS (1)
  1. TRIAMINIC UNKNOWN [Suspect]
     Active Substance: DIPHENHYDRAMINE HYDROCHLORIDE\PHENYLEPHRINE HYDROCHLORIDE
     Indication: RHINORRHOEA
     Dosage: UNK
     Route: 048
     Dates: end: 2008

REACTIONS (2)
  - Cardiac failure congestive [Fatal]
  - Drug administered to patient of inappropriate age [Unknown]
